FAERS Safety Report 14604605 (Version 1)
Quarter: 2018Q1

REPORT INFORMATION
  Report Type: Spontaneous
  Country: ES (occurrence: ES)
  Receive Date: 20180306
  Receipt Date: 20180306
  Transmission Date: 20180509
  Serious: Yes (Hospitalization)
  Sender: FDA-Public Use
  Company Number: PHHY2018ES037068

PATIENT
  Age: 90 Year
  Sex: Female

DRUGS (2)
  1. LEVOFLOXACIN. [Suspect]
     Active Substance: LEVOFLOXACIN
     Indication: RESPIRATORY TRACT INFECTION
     Dosage: 500 MG, QD ; 500MG CADA 24 HORAS
     Route: 048
     Dates: start: 20170305, end: 20170306
  2. CEFDITORENO [Suspect]
     Active Substance: CEFDITOREN
     Indication: RESPIRATORY TRACT INFECTION
     Dosage: 400 MG, Q12H ; 400 MG CADA 12 HORAS
     Route: 048
     Dates: start: 20170226, end: 20170304

REACTIONS (1)
  - Acute generalised exanthematous pustulosis [Recovered/Resolved]

NARRATIVE: CASE EVENT DATE: 20170307
